FAERS Safety Report 24551375 (Version 1)
Quarter: 2024Q4

REPORT INFORMATION
  Report Type: Spontaneous
  Country: US (occurrence: US)
  Receive Date: 20241026
  Receipt Date: 20241026
  Transmission Date: 20250115
  Serious: Yes (Other)
  Sender: AMGEN
  Company Number: US-AMGEN-USASP2024209912

PATIENT

DRUGS (4)
  1. PROLIA [Suspect]
     Active Substance: DENOSUMAB
     Indication: Osteoporosis
     Dosage: 60 MILLIGRAM, EVERY SIX TO NINE MONTHS
     Route: 065
  2. VITAMIN D3 [Concomitant]
     Active Substance: CHOLECALCIFEROL
     Dosage: 1000 TO 1500 INTERNATIONAL UNIT, QD
  3. CALCIUM [Concomitant]
     Active Substance: CALCIUM
     Dosage: 1,000 TO 1,200 MILLIGRAM, QD
  4. CALCIUM [Concomitant]
     Active Substance: CALCIUM
     Dosage: UNK
     Route: 040

REACTIONS (1)
  - Hypocalcaemia [Unknown]
